FAERS Safety Report 26208031 (Version 1)
Quarter: 2025Q4

REPORT INFORMATION
  Report Type: Spontaneous
  Country: GB (occurrence: GB)
  Receive Date: 20251229
  Receipt Date: 20251229
  Transmission Date: 20260117
  Serious: Yes (Other)
  Sender: SANDOZ
  Company Number: None

PATIENT
  Age: 57 Year
  Sex: Female
  Weight: 80 kg

DRUGS (1)
  1. CLARITHROMYCIN [Suspect]
     Active Substance: CLARITHROMYCIN
     Indication: Pertussis
     Dosage: 500 MG TWICE DAILY
     Dates: start: 20251228, end: 20251228

REACTIONS (1)
  - Neuropsychological symptoms [Recovered/Resolved]

NARRATIVE: CASE EVENT DATE: 20251228
